FAERS Safety Report 13704012 (Version 6)
Quarter: 2017Q4

REPORT INFORMATION
  Report Type: Report from Study
  Country: CA (occurrence: CA)
  Receive Date: 20170629
  Receipt Date: 20171004
  Transmission Date: 20180320
  Serious: Yes (Life-Threatening, Other)
  Sender: FDA-Public Use
  Company Number: PHHY2017CA091362

PATIENT
  Age: 28 Year
  Sex: Female

DRUGS (8)
  1. REACTINE [Concomitant]
     Active Substance: CETIRIZINE HYDROCHLORIDE
     Indication: PRODUCT USED FOR UNKNOWN INDICATION
     Route: 065
  2. BENADRYL [Concomitant]
     Active Substance: DIPHENHYDRAMINE HYDROCHLORIDE
     Indication: CHRONIC SPONTANEOUS URTICARIA
     Dosage: 400 MG, QD
     Route: 041
     Dates: start: 2016
  3. DIPHENHYDRAMINE SANDOZ [Suspect]
     Active Substance: DIPHENHYDRAMINE
     Indication: CHRONIC SPONTANEOUS URTICARIA
     Route: 065
  4. BENADRYL [Concomitant]
     Active Substance: DIPHENHYDRAMINE HYDROCHLORIDE
     Dosage: 500 MG/ML, UNK
     Route: 030
  5. NALCROM [Concomitant]
     Active Substance: CROMOLYN SODIUM
     Indication: DYSPEPSIA
     Dosage: 1 DF, QD
     Route: 048
     Dates: start: 201501
  6. ALLEGRA [Concomitant]
     Active Substance: FEXOFENADINE HYDROCHLORIDE
     Indication: PRODUCT USED FOR UNKNOWN INDICATION
     Route: 065
  7. ZANTAC [Concomitant]
     Active Substance: RANITIDINE HYDROCHLORIDE
     Indication: CHRONIC SPONTANEOUS URTICARIA
     Dosage: 1 DF, QD
     Route: 041
     Dates: start: 2016
  8. CLARITIN [Concomitant]
     Active Substance: LORATADINE
     Indication: PRODUCT USED FOR UNKNOWN INDICATION
     Dosage: UNK
     Route: 065

REACTIONS (23)
  - Hunger [Unknown]
  - Diarrhoea [Unknown]
  - Body mass index decreased [Unknown]
  - Pruritus [Unknown]
  - Social avoidant behaviour [Unknown]
  - Urticaria [Unknown]
  - Migraine [Unknown]
  - Headache [Unknown]
  - Vomiting [Unknown]
  - Bedridden [Unknown]
  - Impaired quality of life [Unknown]
  - Feeding disorder [Unknown]
  - Disturbance in attention [Unknown]
  - Malaise [Unknown]
  - Fatigue [Unknown]
  - Rash [Unknown]
  - Abdominal pain upper [Unknown]
  - Abdominal discomfort [Unknown]
  - Swelling [Unknown]
  - Dizziness [Unknown]
  - Anaphylactic reaction [Unknown]
  - Feeling abnormal [Unknown]
  - Starvation [Unknown]

NARRATIVE: CASE EVENT DATE: 201212
